FAERS Safety Report 5311734-9 (Version None)
Quarter: 2007Q2

REPORT INFORMATION
  Report Type: 
  Country: None (occurrence: None)
  Receive Date: 20070430
  Receipt Date: 20070419
  Transmission Date: 20071010
  Serious: Yes (Hospitalization)
  Sender: FDA-Public Use
  Company Number: US-ROCHE-493733

PATIENT
  Age: 30 Year
  Sex: Female

DRUGS (4)
  1. ACCUTANE [Suspect]
     Indication: ACNE
     Route: 048
     Dates: start: 20070318, end: 20070404
  2. WELLBUTRIN [Concomitant]
  3. LEXAPRO [Concomitant]
  4. ABILIFY [Concomitant]

REACTIONS (3)
  - HALLUCINATION, AUDITORY [None]
  - SUICIDAL IDEATION [None]
  - SUICIDE ATTEMPT [None]
